FAERS Safety Report 16738972 (Version 2)
Quarter: 2020Q1

REPORT INFORMATION
  Report Type: Other
  Country: PT (occurrence: PT)
  Receive Date: 20190826
  Receipt Date: 20200218
  Transmission Date: 20200409
  Serious: Yes (Disabling)
  Sender: FDA-Public Use
  Company Number: PT-CELLTRION INC.-2019PT024032

PATIENT

DRUGS (4)
  1. LEPICORTINOLO [PREDNISOLONE] [Concomitant]
     Active Substance: PREDNISOLONE
     Dosage: 1.5 MG/KG, DOSE TOTAL 100MG
     Route: 048
     Dates: start: 20181016, end: 2019
  2. TRUXIMA [Suspect]
     Active Substance: RITUXIMAB-ABBS
     Dosage: 600 MG, 1/WEEK
     Route: 042
     Dates: start: 20181112, end: 20181203
  3. TRUXIMA [Suspect]
     Active Substance: RITUXIMAB-ABBS
     Dosage: 600 MG, 1/WEEK
     Route: 042
     Dates: start: 20181112, end: 20181203
  4. TRUXIMA [Suspect]
     Active Substance: RITUXIMAB-ABBS
     Indication: HAEMOLYTIC ANAEMIA
     Dosage: 600 MG, 1/WEEK
     Route: 042
     Dates: start: 20181112, end: 20181203

REACTIONS (2)
  - Kaposi^s sarcoma [Recovered/Resolved]
  - Product use in unapproved indication [Unknown]

NARRATIVE: CASE EVENT DATE: 201812
